FAERS Safety Report 13903042 (Version 2)
Quarter: 2017Q3

REPORT INFORMATION
  Report Type: Spontaneous
  Country: US (occurrence: US)
  Receive Date: 20170824
  Receipt Date: 20170913
  Transmission Date: 20171127
  Serious: No
  Sender: FDA-Public Use
  Company Number: PHEH2017US026355

PATIENT
  Sex: Female

DRUGS (1)
  1. NEO AND POLY B SULFATES + HYDROCORTISONE [Suspect]
     Active Substance: BACITRACIN\NEOMYCIN\POLYMYXIN B
     Indication: EAR INFECTION
     Route: 001

REACTIONS (1)
  - Drug ineffective [Unknown]
